FAERS Safety Report 10954251 (Version 5)
Quarter: 2015Q3

REPORT INFORMATION
  Report Type: Report from Study
  Country: US (occurrence: US)
  Receive Date: 20150325
  Receipt Date: 20150826
  Transmission Date: 20151125
  Serious: Yes (Hospitalization, Other)
  Sender: FDA-Public Use
  Company Number: US-BAYER-2015-060504

PATIENT
  Age: 73 Year
  Sex: Male
  Weight: 167.5 kg

DRUGS (15)
  1. VITAMIN B COMPLEX [Concomitant]
     Active Substance: CYANOCOBALAMIN\DEXPANTHENOL\NIACINAMIDE\PYRIDOXINE HYDROCHLORIDE\RIBOFLAVIN 5^-PHOSPHATE SODIUM\THIAMINE HYDROCHLORIDE\VITAMIN B COMPLEX
     Dosage: 1 TABLET  DAILY
     Route: 048
     Dates: start: 2005
  2. OXYCONTIN [Concomitant]
     Active Substance: OXYCODONE HYDROCHLORIDE
     Dosage: 10 MG, BID
     Route: 048
     Dates: start: 201412
  3. ROXICODONE [Concomitant]
     Active Substance: OXYCODONE HYDROCHLORIDE
     Indication: PAIN
     Dosage: 5 MG, Q4HR AS NEEDED
     Dates: start: 201412
  4. LAC-HYDRIN [AMMONIUM LACTATE] [Concomitant]
     Dosage: 2 TIMES DAILY
     Route: 061
  5. VITAMIN D2 [Concomitant]
     Active Substance: ERGOCALCIFEROL
     Dosage: UNK UNK, QD
     Route: 048
     Dates: start: 2005
  6. GAS-X [Concomitant]
     Active Substance: DIMETHICONE
     Route: 048
  7. REFAMETINIB [Suspect]
     Active Substance: REFAMETINIB
     Indication: METASTATIC CARCINOMA OF THE BLADDER
     Dosage: C2D1
     Route: 048
     Dates: start: 20150402
  8. REGORAFENIB [Suspect]
     Active Substance: REGORAFENIB
     Indication: METASTATIC CARCINOMA OF THE BLADDER
     Dosage: 120 MG, QD
     Route: 048
     Dates: start: 20150225, end: 20150325
  9. LOPRESSOR [Concomitant]
     Active Substance: METOPROLOL TARTRATE
     Dosage: 25 MG, BID
     Route: 048
  10. MULTIVITAMIN [Concomitant]
     Active Substance: VITAMINS
     Dosage: 1 TABLET DAILY, STARTED }25 YEARS AGO
     Route: 048
  11. CARAFATE [Concomitant]
     Active Substance: SUCRALFATE
     Indication: TUMOUR HAEMORRHAGE
     Dosage: MIX 1 TABLET WITH 5 CC WATER SOLUBLE GEL, APPLY TO TUMOR BID FOR BLEEDING
  12. REFAMETINIB [Suspect]
     Active Substance: REFAMETINIB
     Indication: METASTATIC CARCINOMA OF THE BLADDER
     Dosage: 20 MG, BID
     Route: 048
     Dates: start: 20150225, end: 20150325
  13. NORVASC [Concomitant]
     Active Substance: AMLODIPINE BESYLATE
     Dosage: 5 MG, QD
     Route: 048
  14. XEROFORM [Concomitant]
     Indication: NEOPLASM
     Dosage: APPLY ONCE DAILY TO TUMOR OVER CARAFATE PASTE
  15. REGORAFENIB [Suspect]
     Active Substance: REGORAFENIB
     Indication: METASTATIC CARCINOMA OF THE BLADDER
     Dosage: C2D1
     Route: 048
     Dates: start: 20150402

REACTIONS (2)
  - Blood creatine phosphokinase increased [Recovered/Resolved]
  - Wound infection [Recovered/Resolved]

NARRATIVE: CASE EVENT DATE: 20150317
